FAERS Safety Report 5931575-9 (Version None)
Quarter: 2008Q4

REPORT INFORMATION
  Report Type: 
  Country: None (occurrence: None)
  Receive Date: 20081027
  Receipt Date: 20081022
  Transmission Date: 20090506
  Serious: Yes (Hospitalization)
  Sender: FDA-Public Use
  Company Number: FR-SANOFI-SYNTHELABO-A02200801634

PATIENT
  Age: 53 Year
  Sex: Male

DRUGS (3)
  1. TAHOR [Concomitant]
     Indication: DRUG USE FOR UNKNOWN INDICATION
     Dosage: UNK
     Route: 048
     Dates: start: 20080201
  2. ORAL ANTIDIABETIC [Concomitant]
     Indication: DIABETES MELLITUS
     Dosage: UNK
     Route: 048
     Dates: start: 20080201
  3. PLAVIX [Suspect]
     Indication: ARTERIAL DISORDER
     Route: 048
     Dates: end: 20080217

REACTIONS (2)
  - DIABETES MELLITUS [None]
  - HALLUCINATION [None]
